FAERS Safety Report 16408197 (Version 1)
Quarter: 2019Q2

REPORT INFORMATION
  Report Type: Spontaneous
  Country: ES (occurrence: ES)
  Receive Date: 20190610
  Receipt Date: 20190610
  Transmission Date: 20190711
  Serious: Yes (Disabling)
  Sender: FDA-Public Use
  Company Number: ES-TEVA-2019-ES-1059951

PATIENT
  Age: 48 Year
  Sex: Female

DRUGS (3)
  1. CIPROFLOXACINO (2049A) [Suspect]
     Active Substance: CIPROFLOXACIN
     Indication: DIARRHOEA
     Dosage: 500 MG EVERY 12 HOURS
     Route: 048
     Dates: start: 20190410, end: 20190411
  2. BROMAZEPAM (510A) [Concomitant]
     Indication: ANXIETY
     Route: 048
  3. ANTICONCEPTIVO ORAL [Concomitant]
     Route: 048

REACTIONS (3)
  - Photophobia [Recovered/Resolved]
  - Iridocyclitis [Recovering/Resolving]
  - Headache [Recovered/Resolved]

NARRATIVE: CASE EVENT DATE: 20190411
